FAERS Safety Report 6194963-4 (Version None)
Quarter: 2009Q2

REPORT INFORMATION
  Report Type: 
  Country: None (occurrence: None)
  Receive Date: 20090515
  Receipt Date: 20090508
  Transmission Date: 20091009
  Serious: Yes (Other)
  Sender: FDA-Public Use
  Company Number: 2009SP004294

PATIENT
  Age: 39 Year
  Sex: Male

DRUGS (5)
  1. TEMODAL [Suspect]
     Indication: GLIOBLASTOMA MULTIFORME
     Dosage: 120 MG PO; 250 MG PO
     Route: 048
     Dates: start: 20060216, end: 20060403
  2. TEMODAL [Suspect]
     Indication: GLIOBLASTOMA MULTIFORME
     Dosage: 120 MG PO; 250 MG PO
     Route: 048
     Dates: start: 20060428, end: 20060919
  3. DEXAMETHASONE 4MG TAB [Concomitant]
  4. NEXIUM [Concomitant]
  5. DITRIM DUPLO [Concomitant]

REACTIONS (5)
  - APHASIA [None]
  - ASTROCYTOMA [None]
  - BRAIN OEDEMA [None]
  - EPILEPSY [None]
  - LOSS OF CONSCIOUSNESS [None]
